FAERS Safety Report 6757714-8 (Version None)
Quarter: 2010Q2

REPORT INFORMATION
  Report Type: 
  Country: None (occurrence: None)
  Receive Date: 20100607
  Receipt Date: 20100531
  Transmission Date: 20101027
  Serious: Yes (Hospitalization)
  Sender: FDA-Public Use
  Company Number: IT-B.I. PHARMACEUTICALS,INC./RIDGEFIELD-2010-IT-00122IT

PATIENT
  Sex: Male

DRUGS (11)
  1. PERSANTINE [Suspect]
     Dosage: 4 POSOLOGIC UNIT/DAILY
     Route: 048
     Dates: start: 20100101, end: 20100314
  2. COUMADIN [Suspect]
     Indication: CARDIAC FAILURE
     Route: 048
     Dates: start: 20100301, end: 20100314
  3. ASPIRIN [Suspect]
     Indication: CARDIAC FAILURE
     Dosage: 1 POSOLOGIC UNIT/DAILY
     Route: 048
     Dates: start: 20100301, end: 20100314
  4. TRENTAL [Concomitant]
     Route: 048
  5. ENAPREN [Concomitant]
     Route: 048
  6. BISOPROLOL [Concomitant]
     Route: 048
  7. SUCRAMAL [Concomitant]
     Route: 048
  8. OMEPRAZOLE [Concomitant]
     Route: 048
  9. IDROPLURIVIT [Concomitant]
  10. FOLINA [Concomitant]
     Route: 048
  11. FERROGRAD [Concomitant]
     Dosage: 1 TABLET/DAILY
     Route: 048

REACTIONS (1)
  - ANAEMIA [None]
